FAERS Safety Report 9423093 (Version 2)
Quarter: 2013Q4

REPORT INFORMATION
  Report Type: Spontaneous
  Country: US (occurrence: US)
  Receive Date: 20130726
  Receipt Date: 20131008
  Transmission Date: 20140711
  Serious: No
  Sender: FDA-Public Use
  Company Number: US-ELI_LILLY_AND_COMPANY-US201302006365

PATIENT
  Sex: Male
  Weight: 50.9 kg

DRUGS (4)
  1. HUMATROPE [Suspect]
     Indication: GROWTH HORMONE DEFICIENCY
     Dosage: 2.5 MG, QD
     Dates: start: 20130209
  2. HUMATROPE [Suspect]
     Dosage: 2.6 MG, QD
  3. ZYRTEC [Concomitant]
     Dosage: UNK, UNKNOWN
     Route: 065
  4. FLONASE [Concomitant]
     Dosage: UNK, UNKNOWN
     Route: 065

REACTIONS (5)
  - Pituitary tumour benign [Unknown]
  - Chronic sinusitis [Unknown]
  - Adenoidal hypertrophy [Unknown]
  - Headache [Recovered/Resolved]
  - Weight increased [Recovered/Resolved]
